FAERS Safety Report 12665846 (Version 1)
Quarter: 2016Q3

REPORT INFORMATION
  Report Type: Spontaneous
  Country: FR (occurrence: FR)
  Receive Date: 20160818
  Receipt Date: 20160818
  Transmission Date: 20161109
  Serious: Yes (Hospitalization)
  Sender: FDA-Public Use
  Company Number: FR-ASTRAZENECA-2016SE87608

PATIENT
  Age: 32399 Day
  Sex: Female
  Weight: 77.4 kg

DRUGS (11)
  1. MIRTAZAPINE. [Suspect]
     Active Substance: MIRTAZAPINE
     Route: 048
  2. LAMALINE [Suspect]
     Active Substance: ACETAMINOPHEN\CAFFEINE\OPIUM
     Dosage: 1 TO 4 DOSAGE FORM PER DAY
     Route: 048
  3. SYMBICORT [Suspect]
     Active Substance: BUDESONIDE\FORMOTEROL FUMARATE DIHYDRATE
     Dosage: 1 DOSAGE FORM, TWO TIMES A DAY ON MORNING AND ON NIGHT
     Route: 055
  4. NICORANDIL [Suspect]
     Active Substance: NICORANDIL
     Route: 048
  5. KARDEGIC [Suspect]
     Active Substance: ASPIRIN LYSINE
     Route: 048
  6. GALVUS [Suspect]
     Active Substance: VILDAGLIPTIN
     Route: 048
  7. RAMIPRIL. [Suspect]
     Active Substance: RAMIPRIL
     Route: 048
  8. FENOFIBRATE. [Suspect]
     Active Substance: FENOFIBRATE
     Route: 048
  9. ALPRAZOLAM. [Suspect]
     Active Substance: ALPRAZOLAM
     Route: 048
  10. SECTRAL [Suspect]
     Active Substance: ACEBUTOLOL HYDROCHLORIDE
     Route: 048
  11. KAYEXALATE [Suspect]
     Active Substance: SODIUM POLYSTYRENE SULFONATE
     Dosage: 1 MEASURING SPOON PER WEEK
     Route: 065

REACTIONS (4)
  - Urinary retention [Unknown]
  - Faecaloma [Unknown]
  - Multiple injuries [Recovered/Resolved]
  - Fall [Recovered/Resolved]

NARRATIVE: CASE EVENT DATE: 20160621
